FAERS Safety Report 8762651 (Version 2)
Quarter: 2012Q4

REPORT INFORMATION
  Report Type: 
  Country: US (occurrence: US)
  Receive Date: 20120830
  Receipt Date: 20121008
  Transmission Date: 20130627
  Serious: No
  Sender: FDA-Public Use
  Company Number: US-PFIZER INC-2012211048

PATIENT
  Age: 46 Year
  Sex: Female
  Weight: 70.3 kg

DRUGS (21)
  1. LYRICA [Suspect]
     Indication: FIBROMYALGIA
     Dosage: 75 mg, 3x/day
     Dates: start: 2011, end: 201206
  2. MOBIC [Concomitant]
     Indication: INTERVERTEBRAL DISC DEGENERATION
     Dosage: 15 mg, daily
  3. MOBIC [Concomitant]
     Indication: SPINAL DISORDER
  4. MOBIC [Concomitant]
     Indication: OSTEOPOROSIS
  5. ULTRAM [Concomitant]
     Indication: INTERVERTEBRAL DISC DEGENERATION
     Dosage: 50 mg, 3x/day
  6. ULTRAM [Concomitant]
     Indication: SPINAL DISORDER
  7. ULTRAM [Concomitant]
     Indication: OSTEOPOROSIS
  8. NEURONTIN [Concomitant]
     Indication: INTERVERTEBRAL DISC DEGENERATION
     Dosage: 800 mg, 3x/day
  9. NEURONTIN [Concomitant]
     Indication: SPINAL DISORDER
  10. NEURONTIN [Concomitant]
     Indication: OSTEOPOROSIS
  11. FLEXERIL [Concomitant]
     Indication: INTERVERTEBRAL DISC DEGENERATION
     Dosage: 10 mg, 3x/day
  12. FLEXERIL [Concomitant]
     Indication: SPINAL DISORDER
  13. FLEXERIL [Concomitant]
     Indication: OSTEOPOROSIS
  14. VESICARE [Concomitant]
     Indication: HYPERTONIC BLADDER
     Dosage: 5 mg, daily
  15. KLONOPIN [Concomitant]
     Indication: ANXIETY
     Dosage: 1 mg, 3x/day
  16. PROZAC [Concomitant]
     Indication: DEPRESSION
     Dosage: 20 mg, 2x/day
  17. ZANTAC [Concomitant]
     Indication: GASTRIC DISORDER
     Dosage: 150 mg, 2x/day
  18. ACYCLOVIR [Concomitant]
     Indication: NASOPHARYNGITIS
     Dosage: 200 mg, daily as needed
  19. ACYCLOVIR [Concomitant]
     Indication: OROPHARYNGEAL PAIN
  20. MEGESTROL [Concomitant]
     Indication: HORMONE THERAPY
     Dosage: 40 mg, daily
  21. MEGESTROL [Concomitant]
     Indication: PROPHYLAXIS

REACTIONS (2)
  - Arthralgia [Not Recovered/Not Resolved]
  - Musculoskeletal pain [Not Recovered/Not Resolved]
